FAERS Safety Report 6846980-6 (Version None)
Quarter: 2010Q3

REPORT INFORMATION
  Report Type: 
  Country: None (occurrence: None)
  Receive Date: 20100713
  Receipt Date: 20100702
  Transmission Date: 20110219
  Serious: Yes (Other)
  Sender: FDA-Public Use
  Company Number: TPG2010A00420

PATIENT
  Age: 73 Year
  Sex: Female

DRUGS (5)
  1. PIOGLITAZONE HCL [Suspect]
     Indication: DIABETES MELLITUS
     Dosage: PER ORAL
     Route: 048
     Dates: start: 20090826, end: 20100216
  2. BLOPRESS PLUS (CANDESARTAN CILEXETIL,HYDROCHLOROTHIAZIDE) CANDESARTAN [Suspect]
     Indication: HYPERTENSION
     Dosage: PER ORAL
     Route: 048
  3. FLUVASTATIN [Concomitant]
  4. ITERIUM (RILMENIDINE) [Concomitant]
  5. AMLODIPINE [Concomitant]

REACTIONS (1)
  - RENAL FAILURE ACUTE [None]
